FAERS Safety Report 21253390 (Version 4)
Quarter: 2022Q4

REPORT INFORMATION
  Report Type: Report from Study
  Country: NL (occurrence: NL)
  Receive Date: 20220825
  Receipt Date: 20221021
  Transmission Date: 20230113
  Serious: Yes (Hospitalization, Other)
  Sender: FDA-Public Use
  Company Number: NL-NOVARTISPH-NVSC2022NL187711

PATIENT
  Age: 11 Year
  Sex: Male
  Weight: 47 kg

DRUGS (18)
  1. TRAMETINIB [Suspect]
     Active Substance: TRAMETINIB
     Indication: Glioma
     Dosage: 1.25 MG (1.5/ 1 MG PER DAY)
     Route: 048
     Dates: start: 20210910, end: 20220817
  2. TRAMETINIB [Suspect]
     Active Substance: TRAMETINIB
     Dosage: 0.5 MG, QD  (ABOUT 33%)
     Route: 048
     Dates: start: 20220913, end: 20221005
  3. TRAMETINIB [Suspect]
     Active Substance: TRAMETINIB
     Dosage: UNK
     Route: 065
  4. TRAMETINIB [Suspect]
     Active Substance: TRAMETINIB
     Dosage: 0.75 MG (EVERY OTHER DAY 0.5 MG AND 1.0MG)
     Route: 065
     Dates: start: 20221005, end: 20221012
  5. TRAMETINIB [Suspect]
     Active Substance: TRAMETINIB
     Dosage: 1 MG, QD
     Route: 065
     Dates: start: 20221012
  6. VINBLASTINE [Concomitant]
     Active Substance: VINBLASTINE
     Indication: Cancer hormonal therapy
     Dosage: 6 MG/M2
     Route: 065
     Dates: start: 2020, end: 20220805
  7. VINBLASTINE [Concomitant]
     Active Substance: VINBLASTINE
     Dosage: UNK
     Route: 065
     Dates: start: 20220831
  8. TRIMEPRAZINE [Concomitant]
     Active Substance: TRIMEPRAZINE
     Indication: Insomnia
     Dosage: 7,M MG ANTENOCTURNAL
     Route: 065
     Dates: end: 20220817
  9. TRIMEPRAZINE [Concomitant]
     Active Substance: TRIMEPRAZINE
     Dosage: 7.5 MG, PRN (0.16 MG/KG/DAY AS NEEDED)
     Route: 065
  10. DEXTROAMPHETAMINE [Concomitant]
     Active Substance: DEXTROAMPHETAMINE
     Indication: Overweight
     Dosage: 12.5 MG, QD ( 0.53 MG/KG/DAY, 8-12 HRS)
     Route: 065
  11. DEXTROAMPHETAMINE [Concomitant]
     Active Substance: DEXTROAMPHETAMINE
     Dosage: 2.5 MG, QD (0.053 MG/KG/DAY, 18 HRS)
     Route: 065
  12. ACETAMINOPHEN [Concomitant]
     Active Substance: ACETAMINOPHEN
     Indication: Product used for unknown indication
     Dosage: 100 MG, QD (85 MG/KG/DAY)
     Route: 065
  13. FUSIDIC ACID [Concomitant]
     Active Substance: FUSIDIC ACID
     Indication: Product used for unknown indication
     Dosage: 20 MILLIGRAM PER GRAM, TID (0.064 TIMES/KG/DAY AS NEEDED)
     Route: 003
  14. MUPIROCIN [Concomitant]
     Active Substance: MUPIROCIN
     Indication: Product used for unknown indication
     Dosage: 20 MILLIGRAM PER GRAM, TID
     Route: 003
  15. HYDROCORTISONE [Concomitant]
     Active Substance: HYDROCORTISONE
     Indication: Product used for unknown indication
     Dosage: 20 MG, Q6H (4 TIMES/DAY) (1.7 MG/KG/DAY)
     Route: 042
  16. TRIAMCINOLONE ACETONIDE [Concomitant]
     Active Substance: TRIAMCINOLONE ACETONIDE
     Indication: Product used for unknown indication
     Dosage: 1 MILLIGRAM PER GRAM, Q6H (4 TIMES/DAY)
     Route: 003
  17. POLYETHYLENE GLYCOLS [Concomitant]
     Active Substance: POLYETHYLENE GLYCOLS
     Indication: Product used for unknown indication
     Dosage: 10 G, QD
     Route: 065
  18. LEVOTHYROXINE [Concomitant]
     Active Substance: LEVOTHYROXINE
     Indication: Product used for unknown indication
     Dosage: 87.5 UG, QD (1.9 MCG/KG/DAY)
     Route: 065

REACTIONS (14)
  - Pulmonary hypertension [Recovered/Resolved]
  - Right ventricular dysfunction [Recovered/Resolved]
  - Shock [Unknown]
  - C-reactive protein increased [Unknown]
  - Pyrexia [Unknown]
  - Diarrhoea [Unknown]
  - Pulmonary embolism [Recovered/Resolved]
  - Tachycardia [Unknown]
  - Hyperdynamic left ventricle [Recovered/Resolved]
  - Respiratory tract infection [Recovered/Resolved]
  - Right ventricular hypertrophy [Recovered/Resolved]
  - Pleural effusion [Recovered/Resolved]
  - Vomiting [Unknown]
  - Ejection fraction decreased [Recovered/Resolved]

NARRATIVE: CASE EVENT DATE: 20220818
